FAERS Safety Report 14383490 (Version 8)
Quarter: 2020Q1

REPORT INFORMATION
  Report Type: Report from Study
  Country: ES (occurrence: ES)
  Receive Date: 20180115
  Receipt Date: 20200304
  Transmission Date: 20200409
  Serious: Yes (Hospitalization, Disabling)
  Sender: FDA-Public Use
  Company Number: ES-AMGEN-ESPCT2017158350

PATIENT
  Age: 9 Year
  Sex: Female
  Weight: 20.2 kg

DRUGS (3)
  1. DENOSUMAB [Suspect]
     Active Substance: DENOSUMAB
     Indication: OSTEOGENESIS IMPERFECTA
     Dosage: 0.29 MILLILITER, Q6MO
     Route: 058
     Dates: start: 20171003
  2. CALCIUM W/VITAMIN D [CALCIUM;ERGOCALCIFEROL] [Concomitant]
     Dosage: 500 MILLIGRAM
     Route: 048
     Dates: start: 20171003, end: 20180419
  3. VITAMIN D [ERGOCALCIFEROL] [Concomitant]
     Active Substance: ERGOCALCIFEROL
     Dosage: 400 INTERNATIONAL UNIT
     Route: 048
     Dates: start: 20171003, end: 20180419

REACTIONS (1)
  - Femur fracture [Recovered/Resolved]

NARRATIVE: CASE EVENT DATE: 20171015
